FAERS Safety Report 15723895 (Version 1)
Quarter: 2018Q4

REPORT INFORMATION
  Report Type: Spontaneous
  Country: CA (occurrence: CA)
  Receive Date: 20181214
  Receipt Date: 20181214
  Transmission Date: 20190205
  Serious: Yes (Other)
  Sender: FDA-Public Use
  Company Number: CA-BIOMARINAP-CA-2018-121148

PATIENT
  Sex: Female
  Weight: 138 kg

DRUGS (1)
  1. KUVAN [Suspect]
     Active Substance: SAPROPTERIN DIHYDROCHLORIDE
     Indication: PHENYLKETONURIA
     Dosage: 2600 MILLIGRAM, QD
     Route: 048
     Dates: start: 20160725

REACTIONS (1)
  - Diabetes mellitus [Unknown]
